FAERS Safety Report 15733004 (Version 3)
Quarter: 2019Q1

REPORT INFORMATION
  Report Type: Spontaneous
  Country: AT (occurrence: AT)
  Receive Date: 20181218
  Receipt Date: 20190321
  Transmission Date: 20190417
  Serious: Yes (Death, Hospitalization)
  Sender: FDA-Public Use
  Company Number: AT-B.I. PHARMACEUTICALS,INC./RIDGEFIELD-2018-BI-059676

PATIENT
  Age: 55 Year
  Sex: Female

DRUGS (1)
  1. PRAXBIND [Suspect]
     Active Substance: IDARUCIZUMAB
     Indication: PROCOAGULANT THERAPY
     Route: 065

REACTIONS (5)
  - Injury [Unknown]
  - Hemiparesis [Unknown]
  - Cerebrovascular accident [Fatal]
  - Aphasia [Not Recovered/Not Resolved]
  - Cerebral haemorrhage [Fatal]
